FAERS Safety Report 9163384 (Version 3)
Quarter: 2013Q2

REPORT INFORMATION
  Report Type: Spontaneous
  Country: US (occurrence: US)
  Receive Date: 20130314
  Receipt Date: 20130514
  Transmission Date: 20140414
  Serious: Yes (Other)
  Sender: FDA-Public Use
  Company Number: US-PFIZER INC-2013084273

PATIENT
  Age: 61 Year
  Sex: Male
  Weight: 81 kg

DRUGS (9)
  1. TIKOSYN [Suspect]
     Indication: ATRIAL FIBRILLATION
     Dosage: 0.25 MG, 2X/DAY
     Route: 048
     Dates: start: 201202
  2. ALLOPURINOL [Concomitant]
     Indication: BLOOD URIC ACID INCREASED
     Dosage: 100 MG, 2X/DAY
     Route: 048
  3. FUROSEMIDE [Concomitant]
     Indication: FLUID RETENTION
     Dosage: 40 MG, AS NEEDED
     Route: 048
  4. ALDACTONE [Concomitant]
     Indication: FLUID RETENTION
     Dosage: 25 MG, 1X/DAY
  5. LIPITOR [Concomitant]
     Indication: BLOOD CHOLESTEROL INCREASED
     Dosage: 40 MG, 1X/DAY
     Route: 048
  6. DIGOXIN [Concomitant]
     Dosage: 62.5 UG, 1X/DAY
     Route: 048
  7. ENALAPRIL [Concomitant]
     Dosage: 2.5 MG, 1X/DAY
     Route: 048
  8. METFORMIN [Concomitant]
     Indication: DIABETES MELLITUS
     Dosage: 1000 MG, 2X/DAY
     Route: 048
  9. WARFARIN [Concomitant]
     Dosage: UNK, AS NEEDED

REACTIONS (3)
  - Cardiac disorder [Unknown]
  - Drug ineffective [Unknown]
  - Fatigue [Unknown]
